FAERS Safety Report 9539888 (Version 1)
Quarter: 2013Q3

REPORT INFORMATION
  Report Type: Spontaneous
  Country: CA (occurrence: US)
  Receive Date: 20130920
  Receipt Date: 20130920
  Transmission Date: 20140515
  Serious: Yes (Other)
  Sender: FDA-Public Use
  Company Number: CA-NAPPMUNDI-USA-2011-0076371

PATIENT
  Age: 11 Year
  Sex: Male

DRUGS (1)
  1. DILAUDID TABLET [Suspect]
     Indication: DRUG ABUSE

REACTIONS (4)
  - Drug dependence [Unknown]
  - Drug abuse [Unknown]
  - Malaise [Unknown]
  - Euphoric mood [Unknown]
